FAERS Safety Report 9764529 (Version 1)
Quarter: 2013Q4

REPORT INFORMATION
  Report Type: Spontaneous
  Country: JP (occurrence: JP)
  Receive Date: 20131217
  Receipt Date: 20131217
  Transmission Date: 20140711
  Serious: Yes (Death)
  Sender: FDA-Public Use
  Company Number: JP-ROCHE-1318164

PATIENT
  Age: 84 Year
  Sex: Male
  Weight: 63 kg

DRUGS (7)
  1. AVASTIN [Suspect]
     Indication: COLON CANCER METASTATIC
     Route: 041
     Dates: start: 20130219, end: 20130219
  2. XELODA [Suspect]
     Indication: COLON CANCER METASTATIC
     Dosage: DOSE INTERVAL: 28 TIMES/TWO WEEKS
     Route: 048
     Dates: start: 20130219, end: 20130222
  3. EVIPROSTAT (JAPAN) [Concomitant]
     Indication: BENIGN PROSTATIC HYPERPLASIA
     Route: 048
     Dates: end: 20130222
  4. ADALAT CR [Concomitant]
     Indication: HYPERTENSION
     Route: 048
     Dates: end: 20130222
  5. DIOVAN [Concomitant]
     Indication: HYPERTENSION
     Route: 048
     Dates: end: 20130222
  6. MAGNESIUM OXIDE [Concomitant]
     Indication: CONSTIPATION
     Dosage: SINGLE USE
     Route: 048
     Dates: end: 20130222
  7. CALONAL [Concomitant]
     Indication: ABDOMINAL PAIN
     Dosage: SINGLE USE
     Route: 048
     Dates: end: 20130222

REACTIONS (3)
  - Cerebral haemorrhage [Fatal]
  - Vomiting [Unknown]
  - Malaise [Unknown]
